FAERS Safety Report 7419189-5 (Version None)
Quarter: 2011Q2

REPORT INFORMATION
  Report Type: 
  Country: None (occurrence: None)
  Receive Date: 20110415
  Receipt Date: 20110321
  Transmission Date: 20111010
  Serious: No
  Sender: FDA-Public Use
  Company Number: US-B.I. PHARMACEUTICALS,INC./RIDGEFIELD-2011-BP-01149BP

PATIENT
  Age: 81 Year
  Sex: Female

DRUGS (11)
  1. EXELON [Concomitant]
  2. DILTIAZEM HCL [Concomitant]
  3. FUROSEMIDE [Concomitant]
  4. HYDROCODONE BITARTRATE AND ACETAMINOPHEN [Concomitant]
  5. CALCIUM 600 + VITAMIN D [Concomitant]
  6. MICRO-K [Concomitant]
  7. PRADAXA [Suspect]
     Indication: ATRIAL FIBRILLATION
     Dosage: 300 MG
     Dates: start: 20101225
  8. VITAMIN D2 [Concomitant]
  9. LEVOTHYROXINE SODIUM [Concomitant]
  10. LANOXIN [Concomitant]
  11. LEXAPRO [Concomitant]

REACTIONS (1)
  - COAGULATION TIME PROLONGED [None]
